FAERS Safety Report 6936060-3 (Version None)
Quarter: 2010Q3

REPORT INFORMATION
  Report Type: 
  Country: None (occurrence: None)
  Receive Date: 20100819
  Receipt Date: 20100819
  Transmission Date: 20110219
  Serious: No
  Sender: FDA-Public Use
  Company Number: None

PATIENT
  Sex: Male
  Weight: 93.8946 kg

DRUGS (1)
  1. VIAGRA [Suspect]
     Indication: ERECTILE DYSFUNCTION
     Dosage: 1/2 TABLET AS NEEDED PO  ONLY TOOK IT 3 TIMES
     Route: 048
     Dates: start: 20100206, end: 20100814

REACTIONS (2)
  - DIZZINESS [None]
  - DYSPNOEA [None]
